FAERS Safety Report 7688242-3 (Version None)
Quarter: 2011Q3

REPORT INFORMATION
  Report Type: 
  Country: None (occurrence: None)
  Receive Date: 20110817
  Receipt Date: 20110707
  Transmission Date: 20111222
  Serious: No
  Sender: FDA-Public Use
  Company Number: US-GLAXOSMITHKLINE-A0936731A

PATIENT
  Sex: Male

DRUGS (3)
  1. OXYCODONE HCL [Suspect]
     Indication: PAIN
     Route: 048
  2. MORPHINE [Concomitant]
     Indication: PAIN
     Dosage: 200MG TWICE PER DAY
     Route: 048
  3. VOTRIENT [Suspect]
     Indication: RENAL CANCER
     Dosage: 800MG PER DAY
     Route: 048

REACTIONS (5)
  - OVERDOSE [None]
  - MYALGIA [None]
  - DECREASED APPETITE [None]
  - CONFUSIONAL STATE [None]
  - BONE PAIN [None]
